FAERS Safety Report 13658308 (Version 1)
Quarter: 2017Q2

REPORT INFORMATION
  Report Type: Spontaneous
  Country: FR (occurrence: FR)
  Receive Date: 20170616
  Receipt Date: 20170616
  Transmission Date: 20170830
  Serious: Yes (Other)
  Sender: FDA-Public Use
  Company Number: FR-ACCORD-052592

PATIENT
  Age: 58 Year
  Sex: Female

DRUGS (6)
  1. AZANTAC [Concomitant]
     Active Substance: RANITIDINE HYDROCHLORIDE
  2. PERFALGAN [Concomitant]
     Active Substance: ACETAMINOPHEN
  3. OXALIPLATINE HOSPIRA [Suspect]
     Active Substance: OXALIPLATIN
     Indication: COLORECTAL CANCER METASTATIC
     Dosage: STRENGTH - 5 MG/ML (1 IN 1 CYCLE) , INTRAVENOUS (PERFUSION)
     Route: 042
     Dates: start: 20170427, end: 20170511
  4. POLARAMINE [Concomitant]
     Active Substance: DEXCHLORPHENIRAMINE MALEATE
  5. FLUOROURACILE ACCORD [Suspect]
     Active Substance: FLUOROURACIL
     Indication: COLORECTAL CANCER METASTATIC
     Dosage: INTRAVENOUS (PERFUSION)
     Route: 042
     Dates: start: 20170427
  6. VECTIBIX [Suspect]
     Active Substance: PANITUMUMAB
     Indication: COLORECTAL CANCER METASTATIC
     Dosage: STRENGTH - 20 MG/ML (1 IN 1 CYCLE), INTRAVENOUS (PERFUSION)
     Route: 042
     Dates: start: 20170427

REACTIONS (6)
  - Nausea [Recovered/Resolved]
  - Rash [Recovered/Resolved]
  - Constipation [Recovered/Resolved]
  - Erythema [Unknown]
  - Mucosal dryness [Recovered/Resolved]
  - Odynophagia [Unknown]

NARRATIVE: CASE EVENT DATE: 201704
